FAERS Safety Report 5935422-0 (Version None)
Quarter: 2008Q4

REPORT INFORMATION
  Report Type: 
  Country: None (occurrence: None)
  Receive Date: 20081030
  Receipt Date: 20081022
  Transmission Date: 20090506
  Serious: Yes (Hospitalization)
  Sender: FDA-Public Use
  Company Number: JP-AMGEN-US315927

PATIENT
  Age: 75 Year
  Sex: Female

DRUGS (2)
  1. ENBREL [Suspect]
     Indication: RHEUMATOID ARTHRITIS
     Dosage: UNSPECIFIED
     Route: 058
     Dates: start: 20080820, end: 20081010
  2. METHOTREXATE [Suspect]
     Indication: DRUG USE FOR UNKNOWN INDICATION
     Dosage: 6 MG UNSPECIFIED FREQUENCY
     Route: 065
     Dates: end: 20081001

REACTIONS (6)
  - ANOREXIA [None]
  - CHEST X-RAY ABNORMAL [None]
  - DYSPNOEA [None]
  - INFECTION [None]
  - INTERSTITIAL LUNG DISEASE [None]
  - RHEUMATOID LUNG [None]
